FAERS Safety Report 18274608 (Version 1)
Quarter: 2020Q3

REPORT INFORMATION
  Report Type: Spontaneous
  Country: SE (occurrence: SE)
  Receive Date: 20200916
  Receipt Date: 20200916
  Transmission Date: 20201103
  Serious: Yes (Death)
  Sender: FDA-Public Use
  Company Number: SE-JNJFOC-20200906105

PATIENT
  Age: 86 Year
  Sex: Male

DRUGS (13)
  1. ALVEDON [Concomitant]
     Active Substance: ACETAMINOPHEN
     Dosage: 500 MG 1?2 IF NECESSARY MAX 6/DAY
     Route: 065
     Dates: start: 20180821, end: 201911
  2. CANDESARTAN. [Concomitant]
     Active Substance: CANDESARTAN
     Route: 065
     Dates: start: 20180227, end: 201911
  3. SPIRONOLACTONE. [Concomitant]
     Active Substance: SPIRONOLACTONE
     Route: 065
     Dates: start: 20190831, end: 201911
  4. BRALTUS [Concomitant]
     Active Substance: TIOTROPIUM BROMIDE
     Route: 065
     Dates: start: 20180523, end: 201911
  5. BISOPROLOL [Concomitant]
     Active Substance: BISOPROLOL
     Route: 065
     Dates: start: 20180227, end: 201911
  6. GLYTRIN                            /00003201/ [Concomitant]
     Dosage: 0,4 MG/DOS 1?2 IF NECESSARY?MAX 8/DAY
     Route: 065
     Dates: start: 20180227, end: 201911
  7. OMEPRAZOLE. [Concomitant]
     Active Substance: OMEPRAZOLE
     Route: 065
     Dates: start: 20190831, end: 201911
  8. HALDOL [Suspect]
     Active Substance: HALOPERIDOL
     Indication: ANXIETY
     Dosage: FLUID FOR INJECTION, SOLUTION
     Route: 058
     Dates: start: 201911, end: 201911
  9. ZOPICLONE [Concomitant]
     Active Substance: ZOPICLONE
     Dosage: 5 MG 1 TILL NIGHT IF NECESSARY UNTIL FURTHER?NOTICE
     Route: 065
     Dates: start: 20190829, end: 201911
  10. ELIQUIS [Concomitant]
     Active Substance: APIXABAN
     Route: 065
     Dates: start: 20191009, end: 201911
  11. PIPERACILLIN/TAZOBACTAM [Concomitant]
     Active Substance: PIPERACILLIN SODIUM\TAZOBACTAM SODIUM
     Dosage: PIPERACILLIN/TAZOBACTAM ^20ML(4G)X2^
     Route: 065
     Dates: start: 201911, end: 201911
  12. IPRATROPIUM/SALBUTAMOL [Concomitant]
     Active Substance: ALBUTEROL\IPRATROPIUM BROMIDE
     Dosage: ^0,5MG/2,5MG 1X3^
     Route: 065
     Dates: start: 20190830, end: 201911
  13. FURIX [Concomitant]
     Dosage: 1+1+0+0
     Route: 065
     Dates: start: 20190902, end: 201911

REACTIONS (2)
  - Ventricular fibrillation [Fatal]
  - Accidental overdose [Fatal]

NARRATIVE: CASE EVENT DATE: 201911
